FAERS Safety Report 15593458 (Version 1)
Quarter: 2018Q4

REPORT INFORMATION
  Report Type: Spontaneous
  Country: US (occurrence: US)
  Receive Date: 20181106
  Receipt Date: 20181106
  Transmission Date: 20190205
  Serious: No
  Sender: FDA-Public Use
  Company Number: PHEH2018US046321

PATIENT
  Age: 54 Year
  Sex: Female

DRUGS (2)
  1. KISQALI [Suspect]
     Active Substance: RIBOCICLIB
     Dosage: 200 MG, QD
     Route: 048
  2. KISQALI [Suspect]
     Active Substance: RIBOCICLIB
     Indication: HER-2 POSITIVE BREAST CANCER
     Dosage: 400 MG, QD
     Route: 048
     Dates: start: 201803

REACTIONS (1)
  - Palmar-plantar erythrodysaesthesia syndrome [Not Recovered/Not Resolved]
